FAERS Safety Report 21090843 (Version 3)
Quarter: 2023Q1

REPORT INFORMATION
  Report Type: Spontaneous
  Country: US (occurrence: US)
  Receive Date: 20220716
  Receipt Date: 20230321
  Transmission Date: 20230417
  Serious: No
  Sender: FDA-Public Use
  Company Number: US-LUPIN PHARMACEUTICALS INC.-2022-09411

PATIENT
  Sex: Female

DRUGS (1)
  1. ALBUTEROL SULFATE [Suspect]
     Active Substance: ALBUTEROL SULFATE
     Indication: Product used for unknown indication
     Dosage: UNK UNK, PRN (TOOK 4 A DAY, 2 IN THE MORNING AND 2 AT NIGHT)
     Dates: start: 20220620

REACTIONS (4)
  - Product delivery mechanism issue [Unknown]
  - Wrong technique in product usage process [Unknown]
  - Product label issue [Unknown]
  - No adverse event [Unknown]
